FAERS Safety Report 4295659-6 (Version None)
Quarter: 2004Q1

REPORT INFORMATION
  Report Type: 
  Country: None (occurrence: None)
  Receive Date: 20040212
  Receipt Date: 20040202
  Transmission Date: 20041129
  Serious: Yes (Hospitalization)
  Sender: FDA-Public Use
  Company Number: HQWYE813304FEB04

PATIENT
  Age: 80 Year
  Sex: Male

DRUGS (2)
  1. ADVIL FLU AND BODY ACHE (IBUPROFEN/PSEUDOEPHEDRINE, CAPLET) [Suspect]
     Indication: INFLUENZA
     Dosage: 12 TABLETS OVER 9 DAYS, ORAL
     Route: 048
     Dates: start: 20040103, end: 20040111
  2. PRILOSEC [Concomitant]

REACTIONS (3)
  - ABDOMINAL PAIN UPPER [None]
  - ANOREXIA [None]
  - NAUSEA [None]
